FAERS Safety Report 8711037 (Version 4)
Quarter: 2014Q2

REPORT INFORMATION
  Report Type: Spontaneous
  Country: US (occurrence: US)
  Receive Date: 20120807
  Receipt Date: 20131024
  Transmission Date: 20141212
  Serious: No
  Sender: FDA-Public Use
  Company Number: US-PFIZER INC-2012187424

PATIENT
  Age: 59 Year
  Sex: 0

DRUGS (40)
  1. AMLODIPINE BESILATE [Suspect]
     Dosage: UNK
  2. METHOTREXATE [Suspect]
     Dosage: UNK
  3. OXYMETAZOLINE [Suspect]
     Dosage: UNK
  4. SEPTRA [Suspect]
     Dosage: UNK
  5. LODINE [Suspect]
     Dosage: UNK
  6. CODEINE [Suspect]
     Dosage: UNK
  7. CELEBREX [Suspect]
     Dosage: UNK
  8. MECLOZINE HCL [Suspect]
     Dosage: UNK
  9. MORPHINE SULFATE [Suspect]
     Dosage: UNK
  10. SODIUM CROMOGLICATE [Suspect]
     Dosage: UNK
  11. PHENYLPROPANOLAMINE [Suspect]
     Dosage: UNK
  12. ASPIRIN [Suspect]
     Dosage: UNK
  13. THEOPHYLLINE [Suspect]
     Dosage: UNK
  14. FOSINOPRIL SODIUM [Suspect]
     Dosage: UNK
  15. PHENYLEPHRINE HYDROCHLORIDE [Suspect]
     Dosage: UNK
  16. FLUTICASONE [Suspect]
     Dosage: UNK
  17. CEFADROXIL [Suspect]
     Dosage: UNK
  18. GEMIFLOXACIN MESILATE [Suspect]
     Dosage: UNK
  19. CEFUROXIME AXETIL [Suspect]
     Dosage: UNK
  20. TETRACYCLINE HYDROCHLORIDE [Suspect]
     Dosage: UNK
  21. SULFANILAMIDE [Suspect]
     Dosage: UNK
  22. CHLORPHENIRAMINE MALEATE [Suspect]
     Dosage: UNK
  23. DEXCHLORPHENIRAMINE MALEATE [Suspect]
     Dosage: UNK
  24. METHSCOPOLAMINE NIT [Suspect]
     Dosage: UNK
  25. ASTEMIZOLE [Suspect]
     Dosage: UNK
  26. CHLORPHENIRAMINE [Suspect]
     Dosage: UNK
  27. PHENYLTOLOXAMINE [Suspect]
     Dosage: UNK
  28. PSEUDOEPHEDRINE HYDROCHLORIDE [Suspect]
     Dosage: UNK
  29. TRIPROLIDINE HYDROCHLORIDE [Suspect]
     Dosage: UNK
  30. LEFLUNOMIDE [Suspect]
     Dosage: UNK
  31. PSEUDOEPHEDRINE SULFATE [Suspect]
     Dosage: UNK
  32. ALBUTEROL SULFATE [Suspect]
     Dosage: UNK
  33. MOXIFLOXACIN HYDROCHLORIDE [Suspect]
     Dosage: UNK
  34. CODEINE PHOSPHATE [Suspect]
     Dosage: UNK
  35. CAFFEINE [Suspect]
     Dosage: UNK
  36. BACTRIM [Suspect]
     Dosage: UNK
  37. CECLOR [Suspect]
     Dosage: UNK
  38. DEMEROL [Suspect]
     Dosage: UNK
  39. NAPROSYN [Suspect]
     Dosage: UNK
  40. ACETAMINOPHEN [Suspect]
     Dosage: UNK

REACTIONS (1)
  - Drug hypersensitivity [Unknown]
